FAERS Safety Report 8191288-2 (Version None)
Quarter: 2012Q1

REPORT INFORMATION
  Report Type: 
  Country: None (occurrence: None)
  Receive Date: 20120307
  Receipt Date: 20120301
  Transmission Date: 20120608
  Serious: Yes (Hospitalization)
  Sender: FDA-Public Use
  Company Number: DK-B.I. PHARMACEUTICALS,INC./RIDGEFIELD-2012-SW-00171DB

PATIENT
  Sex: Male
  Weight: 76 kg

DRUGS (2)
  1. PRADAXA [Suspect]
     Indication: THROMBOSIS PROPHYLAXIS
     Dosage: 110 MG
     Route: 048
     Dates: start: 20120117, end: 20120213
  2. CORDARONE [Concomitant]
     Indication: ATRIAL FIBRILLATION
     Dates: start: 20120117, end: 20120213

REACTIONS (1)
  - RENAL IMPAIRMENT [None]
